FAERS Safety Report 7542440-8 (Version None)
Quarter: 2011Q2

REPORT INFORMATION
  Report Type: 
  Country: None (occurrence: None)
  Receive Date: 20110613
  Receipt Date: 20110401
  Transmission Date: 20111010
  Serious: No
  Sender: FDA-Public Use
  Company Number: A0921948A

PATIENT
  Age: 66 Year
  Sex: Female

DRUGS (3)
  1. NICOTINE [Concomitant]
     Route: 062
  2. NICORETTE [Suspect]
     Route: 002
  3. NICORETTE [Concomitant]
     Route: 002

REACTIONS (1)
  - NONSPECIFIC REACTION [None]
